FAERS Safety Report 8620514-8 (Version None)
Quarter: 2012Q3

REPORT INFORMATION
  Report Type: 
  Country: None (occurrence: None)
  Receive Date: 20120824
  Receipt Date: 20120810
  Transmission Date: 20120928
  Serious: Yes (Hospitalization)
  Sender: FDA-Public Use
  Company Number: FR-FRI-1000038112

PATIENT
  Sex: Male

DRUGS (9)
  1. ESCITALOPRAM [Suspect]
     Indication: DEPRESSION
     Dosage: 10 MG
     Route: 048
     Dates: start: 20120630, end: 20120702
  2. AVODART [Concomitant]
  3. AMLODIPINE BESYLATE [Concomitant]
  4. LANTUS [Concomitant]
  5. RAMIPRIL [Concomitant]
  6. LASIX [Suspect]
     Dosage: 20 MG
     Route: 048
     Dates: end: 20120702
  7. AMIODARONE HCL [Concomitant]
  8. EUPRESSYL [Concomitant]
  9. NITROGLYCERIN [Concomitant]

REACTIONS (2)
  - DRUG INTERACTION [None]
  - HYPONATRAEMIA [None]
